FAERS Safety Report 16725418 (Version 1)
Quarter: 2019Q3

REPORT INFORMATION
  Report Type: Spontaneous
  Country: GB (occurrence: GB)
  Receive Date: 20190821
  Receipt Date: 20190821
  Transmission Date: 20191005
  Serious: Yes (Other)
  Sender: FDA-Public Use
  Company Number: GB-PFIZER INC-2019353919

PATIENT
  Age: 59 Year
  Sex: Male
  Weight: 62 kg

DRUGS (16)
  1. PARACETAMOL [Concomitant]
     Active Substance: ACETAMINOPHEN
     Dosage: UNK, 4X/DAY (1 OR 2 4X/DAY)
     Dates: start: 20181121
  2. FOSTAIR [Concomitant]
     Active Substance: BECLOMETHASONE\FORMOTEROL
     Dosage: 4 DF, 1X/DAY
     Dates: start: 20181121
  3. SODIUM CHLORIDE. [Concomitant]
     Active Substance: SODIUM CHLORIDE
     Dosage: UNK (USE AS DIRECTED)
     Dates: start: 20181121
  4. AZITHROMYCIN ANHYDROUS. [Concomitant]
     Active Substance: AZITHROMYCIN ANHYDROUS
     Dosage: 3 DF, 1X/DAY
     Dates: start: 20181121
  5. FUROSEMIDE. [Concomitant]
     Active Substance: FUROSEMIDE
     Dosage: 1 DF, 1X/DAY (EACH MORNING)
     Dates: start: 20190623
  6. GLYCERYL TRINITRATE [Concomitant]
     Active Substance: NITROGLYCERIN
     Dosage: UNK (1-2 DOSES)
     Route: 060
     Dates: start: 20181121
  7. QUININE [Concomitant]
     Active Substance: QUININE
     Dosage: UNK UNK, AS NEEDED
     Dates: start: 20181231
  8. LANSOPRAZOLE. [Concomitant]
     Active Substance: LANSOPRAZOLE
     Dosage: 1 DF, 1X/DAY
     Dates: start: 20181121
  9. BETNESOL [Concomitant]
     Dosage: 2 DF, 1X/DAY (FOR 7 DAYS)
     Dates: start: 20181231, end: 20190623
  10. FLUTICASONE FUROATE [Concomitant]
     Active Substance: FLUTICASONE FUROATE
     Dosage: 4 DF, 1X/DAY (2 SPRAYS EACH NOSTRIL)
     Route: 045
     Dates: start: 20190528
  11. CARBOCISTEINE [Concomitant]
     Active Substance: CARBOCYSTEINE
     Dosage: UNK, 3X/DAY (1-2 3X/DAY)
     Dates: start: 20181121
  12. SPIRONOLACTONE. [Concomitant]
     Active Substance: SPIRONOLACTONE
     Dosage: 1 DF, 1X/DAY (EACH MORNING)
     Dates: start: 20190623
  13. PIPERACILLIN/TAZOBACTAM [Suspect]
     Active Substance: PIPERACILLIN SODIUM\TAZOBACTAM SODIUM
     Dosage: UNK
     Dates: start: 20190719
  14. SALBUTAMOL [Concomitant]
     Active Substance: ALBUTEROL
     Dosage: 2 DF, AS NEEDED
     Route: 055
     Dates: start: 20181121
  15. PREDNISOLONE. [Concomitant]
     Active Substance: PREDNISOLONE
     Dosage: 10 MG, UNK
     Dates: start: 20181121
  16. ACCRETE D3 [Concomitant]
     Active Substance: CALCIUM CARBONATE\CHOLECALCIFEROL
     Dosage: 2 DF, 1X/DAY
     Dates: start: 20181121

REACTIONS (1)
  - Swelling face [Recovered/Resolved]

NARRATIVE: CASE EVENT DATE: 20190719
